FAERS Safety Report 8564698-9 (Version None)
Quarter: 2012Q3

REPORT INFORMATION
  Report Type: 
  Country: None (occurrence: None)
  Receive Date: 20120803
  Receipt Date: 20120727
  Transmission Date: 20120928
  Serious: Yes (Death, Life-Threatening, Hospitalization)
  Sender: FDA-Public Use
  Company Number: JP-ELI_LILLY_AND_COMPANY-JP201203002033

PATIENT
  Sex: Female
  Weight: 57 kg

DRUGS (17)
  1. GASCON [Concomitant]
     Dosage: 120 MG, UNK
     Route: 048
  2. VITAMIN B12 [Concomitant]
     Dosage: 1 G, UNK
     Route: 030
     Dates: start: 20120116
  3. NORVASC [Concomitant]
     Dosage: 2.5 MG, UNK
     Route: 048
  4. MAGMITT [Concomitant]
     Dosage: 1500 MG, UNK
     Route: 048
  5. ALIMTA [Suspect]
     Dosage: 700 MG/M2, UNK
     Route: 042
     Dates: start: 20101116, end: 20101214
  6. FOLIC ACID [Concomitant]
     Dosage: 0.5 MG, UNK
     Route: 048
     Dates: start: 20120116, end: 20120320
  7. VITAMIN B12 [Concomitant]
     Dosage: 1000 UNK, UNK
     Route: 048
  8. LEVOTHYROXINE SODIUM [Concomitant]
     Dosage: 75 UG, TID
     Route: 048
  9. VITAMIN B12 [Concomitant]
     Dosage: 1 G, UNK
     Route: 030
     Dates: start: 20100712
  10. ALIMTA [Suspect]
     Indication: LARGE CELL LUNG CANCER STAGE III
     Dosage: 700 MG/M2, UNK
     Route: 042
     Dates: start: 20100720, end: 20101013
  11. SELBEX [Concomitant]
     Dosage: 50 MG, UNK
     Route: 048
  12. CISPLATIN [Concomitant]
     Indication: LARGE CELL LUNG CANCER STAGE III
     Dosage: 100 MG/M2, UNK
     Route: 042
     Dates: start: 20100720, end: 20101013
  13. ASPIRIN [Concomitant]
     Dosage: 100 MG, UNK
     Route: 048
  14. VITAMIN B12 [Concomitant]
     Dosage: 1 G, UNK
     Route: 030
     Dates: start: 20101116
  15. ALIMTA [Suspect]
     Dosage: 700 MG/M2, UNK
     Route: 042
     Dates: start: 20120118, end: 20120214
  16. VINORELBINE [Concomitant]
     Indication: LARGE CELL LUNG CANCER STAGE III
     Dosage: 35 MG/M2, UNK
     Dates: start: 20110708, end: 20110927
  17. FOLIC ACID [Concomitant]
     Indication: PROPHYLAXIS
     Dosage: 0.5 MG, UNK
     Route: 048
     Dates: start: 20100712, end: 20101231

REACTIONS (13)
  - SHOCK [None]
  - CANDIDIASIS [None]
  - DISSEMINATED INTRAVASCULAR COAGULATION [None]
  - LIVER DISORDER [None]
  - RASH [None]
  - LARGE INTESTINE PERFORATION [None]
  - DECREASED APPETITE [None]
  - ENTEROCOLITIS [None]
  - PERITONITIS [None]
  - HAEMOGLOBIN DECREASED [None]
  - RESPIRATORY FAILURE [None]
  - PNEUMONIA [None]
  - MALAISE [None]
